FAERS Safety Report 23546138 (Version 2)
Quarter: 2024Q2

REPORT INFORMATION
  Report Type: Report from Study
  Country: CA (occurrence: CA)
  Receive Date: 20240220
  Receipt Date: 20240508
  Transmission Date: 20240715
  Serious: Yes (Hospitalization, Other)
  Sender: FDA-Public Use
  Company Number: CA-HLS-202400009

PATIENT
  Age: 48 Year
  Sex: Female

DRUGS (2)
  1. CLOZARIL [Suspect]
     Active Substance: CLOZAPINE
     Indication: Schizophrenia
     Route: 065
     Dates: end: 20240207
  2. CLOZARIL [Suspect]
     Active Substance: CLOZAPINE
     Indication: Schizophrenia
     Dosage: 300 MG DAILY IN THE MORNING
     Route: 048
     Dates: start: 20230202, end: 2023

REACTIONS (6)
  - Therapy cessation [Unknown]
  - Overweight [Unknown]
  - Off label use [Unknown]
  - Product dose omission issue [Not Recovered/Not Resolved]
  - Therapy interrupted [Unknown]
  - Psychiatric decompensation [Recovered/Resolved]

NARRATIVE: CASE EVENT DATE: 20240207
